FAERS Safety Report 24565597 (Version 2)
Quarter: 2024Q4

REPORT INFORMATION
  Report Type: Spontaneous
  Country: ES (occurrence: ES)
  Receive Date: 20241030
  Receipt Date: 20241114
  Transmission Date: 20250114
  Serious: Yes (Other)
  Sender: RANBAXY
  Company Number: ES-SUN PHARMACEUTICAL INDUSTRIES LTD-2024RR-476570

PATIENT
  Age: 61 Year
  Sex: Male
  Weight: 87 kg

DRUGS (13)
  1. ATORVASTATIN [Suspect]
     Active Substance: ATORVASTATIN
     Indication: Hyperlipidaemia
     Dosage: 1 DOSAGE FORM, DAILY
     Route: 002
     Dates: start: 20240806, end: 20240830
  2. TOPAMAX [Interacting]
     Active Substance: TOPIRAMATE
     Indication: Obesity
     Dosage: 50 MILLIGRAM
     Route: 048
     Dates: start: 20130730
  3. TOPAMAX [Interacting]
     Active Substance: TOPIRAMATE
     Dosage: 100 MILLIGRAM
     Route: 065
     Dates: start: 20140130
  4. ACETAMINOPHEN\TRAMADOL HYDROCHLORIDE [Suspect]
     Active Substance: ACETAMINOPHEN\TRAMADOL HYDROCHLORIDE
     Indication: Spondylolysis
     Dosage: 1 DOSAGE FORM, 1DOSE/8HR
     Route: 048
     Dates: start: 20150812
  5. PALEXIA [Suspect]
     Active Substance: TAPENTADOL HYDROCHLORIDE
     Indication: Spondylitis
     Dosage: 50 MILLIGRAM
     Route: 048
     Dates: start: 20240627
  6. BISOPROLOL FUMARATE [Concomitant]
     Active Substance: BISOPROLOL FUMARATE
     Indication: Coronary artery bypass
     Dosage: 2.5 MILLIGRAM
     Route: 048
     Dates: start: 20240202
  7. XARELTO [Concomitant]
     Active Substance: RIVAROXABAN
     Indication: Cardiac failure congestive
     Dosage: 20 MILLIGRAM
     Route: 048
     Dates: start: 20240313
  8. SACUBITRIL\VALSARTAN [Concomitant]
     Active Substance: SACUBITRIL\VALSARTAN
     Indication: Cardiac failure congestive
     Dosage: 1 DOSAGE FORM, BID
     Route: 048
     Dates: start: 20240313
  9. CLOPIDOGREL TARBIS [Concomitant]
     Indication: Cardiac failure congestive
     Dosage: 75 MILLIGRAM
     Route: 048
     Dates: start: 20240314
  10. SILODOSIN [Concomitant]
     Active Substance: SILODOSIN
     Indication: Haematuria
     Dosage: 8 MILLIGRAM
     Route: 048
     Dates: start: 20240220
  11. FUROSEMIDA COMBIX [Concomitant]
     Indication: Cardiac disorder
     Dosage: 20 MILLIGRAM
     Route: 048
     Dates: start: 20240313
  12. PANTOPRAZOL TEVA-RATIO [Concomitant]
     Indication: Product used for unknown indication
     Dosage: 40 MILLIGRAM
     Route: 048
     Dates: start: 20120705
  13. ALDACTONE [Concomitant]
     Active Substance: SPIRONOLACTONE
     Indication: Cardiac failure congestive
     Dosage: 25 MILLIGRAM
     Route: 048
     Dates: start: 20240314

REACTIONS (3)
  - Hypersomnia [Recovered/Resolved]
  - Drug interaction [Recovered/Resolved]
  - Abdominal discomfort [Recovered/Resolved]

NARRATIVE: CASE EVENT DATE: 20240808
